FAERS Safety Report 25656045 (Version 1)
Quarter: 2025Q3

REPORT INFORMATION
  Report Type: Report from Study
  Country: GB (occurrence: GB)
  Receive Date: 20250807
  Receipt Date: 20250807
  Transmission Date: 20251021
  Serious: Yes (Hospitalization)
  Sender: ABBVIE
  Company Number: GB-ABBVIE-6403527

PATIENT
  Sex: Female

DRUGS (1)
  1. RINVOQ [Suspect]
     Active Substance: UPADACITINIB
     Indication: Rheumatoid arthritis
     Dosage: FORM STRENGTH- 15MG MODIFIED-RELEASE TABLETS (ABBVIE LTD) 28 TABLET
     Route: 048

REACTIONS (3)
  - Illness [Unknown]
  - Abscess [Unknown]
  - Infection [Unknown]
